FAERS Safety Report 7808648-9 (Version None)
Quarter: 2011Q4

REPORT INFORMATION
  Report Type: 
  Country: None (occurrence: None)
  Receive Date: 20111012
  Receipt Date: 20111003
  Transmission Date: 20120403
  Serious: Yes (Other)
  Sender: FDA-Public Use
  Company Number: US-US-EMD SERONO, INC.-7063691

PATIENT
  Sex: Female

DRUGS (2)
  1. REBIF [Suspect]
     Indication: MULTIPLE SCLEROSIS
     Route: 058
     Dates: start: 20100614
  2. LOVASTATIN [Concomitant]
     Indication: BLOOD CHOLESTEROL INCREASED

REACTIONS (6)
  - DEPRESSION [None]
  - RED BLOOD CELL COUNT DECREASED [None]
  - BLOOD CHOLESTEROL INCREASED [None]
  - INJECTION SITE ERYTHEMA [None]
  - URINARY INCONTINENCE [None]
  - BLOOD GLUCOSE DECREASED [None]
